FAERS Safety Report 4596555-7 (Version None)
Quarter: 2005Q1

REPORT INFORMATION
  Report Type: 
  Country: None (occurrence: None)
  Receive Date: 20050302
  Receipt Date: 20041227
  Transmission Date: 20050727
  Serious: Yes (Hospitalization)
  Sender: FDA-Public Use
  Company Number: PHNU2004DE04313

PATIENT
  Age: 38 Year
  Sex: Male
  Weight: 78 kg

DRUGS (4)
  1. MELPERONE [Concomitant]
  2. CLOZARIL [Suspect]
     Indication: SCHIZOPHRENIA
     Route: 048
  3. CLOZARIL [Suspect]
     Dosage: UNK, UNK
     Route: 048
     Dates: end: 20041222
  4. TAXILAN [Suspect]
     Dosage: 75 MG, QID
     Dates: start: 20041211, end: 20041222

REACTIONS (5)
  - CARDIOVASCULAR DISORDER [None]
  - CONSTIPATION [None]
  - DRUG INTERACTION INHIBITION [None]
  - DRUG LEVEL INCREASED [None]
  - TREMOR [None]
